FAERS Safety Report 18355614 (Version 1)
Quarter: 2020Q4

REPORT INFORMATION
  Report Type: Spontaneous
  Country: GB (occurrence: GB)
  Receive Date: 20201007
  Receipt Date: 20201007
  Transmission Date: 20210114
  Serious: Yes (Other)
  Sender: FDA-Public Use
  Company Number: GB-TEVA-2020-GB-1835562

PATIENT
  Age: 76 Year
  Sex: Female
  Weight: 58.06 kg

DRUGS (8)
  1. LANSOPRAZOLE. [Concomitant]
     Active Substance: LANSOPRAZOLE
  2. AMLODIPINE [Concomitant]
     Active Substance: AMLODIPINE BESYLATE
  3. CLOPIDOGREL [Concomitant]
     Active Substance: CLOPIDOGREL BISULFATE
  4. FOSTAIR [Suspect]
     Active Substance: BECLOMETHASONE\FORMOTEROL
     Indication: DYSPNOEA
     Dosage: 100MICROGRAMS/6MICROGRAMS
     Route: 055
     Dates: start: 20200402
  5. PREDNISOLONE. [Suspect]
     Active Substance: PREDNISOLONE
     Indication: LOWER RESPIRATORY TRACT INFECTION
     Dosage: 30MG
     Route: 048
     Dates: start: 20200904
  6. ATORVASTATIN [Concomitant]
     Active Substance: ATORVASTATIN
  7. DOXYCYCLINE. [Suspect]
     Active Substance: DOXYCYCLINE
     Indication: LOWER RESPIRATORY TRACT INFECTION
     Dosage: 100MG
     Route: 048
     Dates: start: 20200904
  8. FULTIUM-D3 [Concomitant]
     Active Substance: CHOLECALCIFEROL

REACTIONS (4)
  - Throat irritation [Unknown]
  - Oral candidiasis [Not Recovered/Not Resolved]
  - Catarrh [Unknown]
  - Dyspnoea [Unknown]

NARRATIVE: CASE EVENT DATE: 20200701
